FAERS Safety Report 9349074 (Version 1)
Quarter: 2013Q2

REPORT INFORMATION
  Report Type: Spontaneous
  Country: JP (occurrence: JP)
  Receive Date: 20130614
  Receipt Date: 20130614
  Transmission Date: 20140414
  Serious: Yes (Hospitalization)
  Sender: FDA-Public Use
  Company Number: JP-PFIZER INC-2013104686

PATIENT
  Age: 45 Year
  Sex: Male
  Weight: 63.1 kg

DRUGS (9)
  1. CHAMPIX [Suspect]
     Indication: SMOKING CESSATION THERAPY
     Dosage: 0.5 MG, 1X/DAY
     Route: 048
     Dates: start: 20130316, end: 20130321
  2. CHAMPIX [Interacting]
     Dosage: 0.5 MG, 2X/DAY
     Route: 048
     Dates: start: 20130322, end: 20130329
  3. KINEDAK [Concomitant]
     Dosage: 50 MG, 3X/DAY
     Route: 048
  4. METHYCOBAL [Concomitant]
     Dosage: 500 UG, 3X/DAY
     Route: 048
  5. TOCOPHERYL NICOTINATE [Concomitant]
     Dosage: 100 MG, 3X/DAY
     Route: 048
  6. AMOBAN [Concomitant]
     Dosage: 10 MG, 1X/DAY
  7. MYSLEE [Concomitant]
     Dosage: UNK
  8. NOVOLIN [Concomitant]
     Dosage: UNK
  9. LEVEMIR [Concomitant]
     Dosage: UNK

REACTIONS (9)
  - Alcohol interaction [Unknown]
  - Liver disorder [Recovered/Resolved]
  - Somnolence [Recovering/Resolving]
  - Nausea [Recovering/Resolving]
  - Altered state of consciousness [Recovered/Resolved]
  - Blood glucose increased [Unknown]
  - Disorientation [Unknown]
  - Dyslalia [Unknown]
  - Memory impairment [Unknown]
